FAERS Safety Report 9843539 (Version 1)
Quarter: 2013Q4

REPORT INFORMATION
  Report Type: Spontaneous
  Country: US (occurrence: None)
  Receive Date: 20131223
  Receipt Date: 20131223
  Transmission Date: 20140711
  Serious: No
  Sender: FDA-Public Use
  Company Number: 219356LEO

PATIENT
  Sex: Female

DRUGS (2)
  1. PICATO (0.015, GEL) [Suspect]
     Indication: ACTINIC KERATOSIS
     Dosage: 0.47 GM (ENTIRE TUBE)
     Dates: start: 20121005
  2. MULTIVITAMIN (MULTIVITAMINS) [Concomitant]

REACTIONS (1)
  - Application site vesicles [None]
